FAERS Safety Report 11201362 (Version 1)
Quarter: 2015Q2

REPORT INFORMATION
  Report Type: Spontaneous
  Country: FR (occurrence: None)
  Receive Date: 20150617
  Receipt Date: 20150617
  Transmission Date: 20150821
  Serious: Yes (Death, Hospitalization)
  Sender: FDA-Public Use
  Company Number: COR_00314_2015

PATIENT
  Age: 70 Year
  Sex: Male

DRUGS (13)
  1. COLISTIN [Concomitant]
     Active Substance: COLISTIN
  2. POSACONAZOLE [Concomitant]
     Active Substance: POSACONAZOLE
  3. PREDNISONE. [Concomitant]
     Active Substance: PREDNISONE
  4. LOMUSTINE (LOMUSTINE) [Suspect]
     Active Substance: LOMUSTINE
     Indication: ACUTE MYELOID LEUKAEMIA
     Dosage: DF
     Dates: start: 201204
  5. CYTARABINE (CYTARABINE) [Suspect]
     Active Substance: CYTARABINE
     Indication: ACUTE MYELOID LEUKAEMIA
     Dosage: DF
     Dates: start: 201204
  6. IDARUBICIN (IDARUBICIN) (IDARUBICIN) [Suspect]
     Active Substance: IDARUBICIN
     Indication: ACUTE MYELOID LEUKAEMIA
     Dosage: DF
     Dates: start: 201204
  7. CIPROFLOXACIN. [Concomitant]
     Active Substance: CIPROFLOXACIN
  8. PIPERACILLIN AND TAZOBACTAM [Concomitant]
     Active Substance: PIPERACILLIN SODIUM\TAZOBACTAM SODIUM
  9. DAUNORUBICIN (DAUNORUBICIN) [Suspect]
     Active Substance: DAUNORUBICIN
     Indication: ACUTE MYELOID LEUKAEMIA
     Dosage: DF
     Dates: start: 201204
  10. VANCOMYCIN [Concomitant]
     Active Substance: VANCOMYCIN
  11. IMIPENEM [Concomitant]
     Active Substance: IMIPENEM
  12. GENTAMICIN. [Concomitant]
     Active Substance: GENTAMICIN
  13. AMIKACIN [Concomitant]
     Active Substance: AMIKACIN

REACTIONS (3)
  - Geotrichum infection [None]
  - Septic shock [None]
  - Acute respiratory distress syndrome [None]
